FAERS Safety Report 18119006 (Version 4)
Quarter: 2020Q4

REPORT INFORMATION
  Report Type: Report from Study
  Country: US (occurrence: US)
  Receive Date: 20200806
  Receipt Date: 20201209
  Transmission Date: 20210113
  Serious: Yes (Hospitalization)
  Sender: FDA-Public Use
  Company Number: US-ROCHE-2582875

PATIENT
  Age: 71 Year
  Sex: Male
  Weight: 57.2 kg

DRUGS (6)
  1. OBINUTUZUMAB. [Suspect]
     Active Substance: OBINUTUZUMAB
     Indication: CHRONIC LYMPHOCYTIC LEUKAEMIA
     Dosage: 100 MG IV ON C1D1, 900 MG IV ON C1D2, 1000 MG IV ON C1D8 + C1D15, C2-6D1?LAST DOSE PRIOR TO EVENT ON
     Route: 042
     Dates: start: 20191210
  2. IBRUTINIB [Suspect]
     Active Substance: IBRUTINIB
     Indication: CHRONIC LYMPHOCYTIC LEUKAEMIA
     Dosage: LAST DOSE PRIOR TO EVENT ONSET WAS RECEIVED ON 30-MAR-2020, 06/APR/2020. ON 20/JUL/2020, HE RECEIVED
     Route: 048
     Dates: start: 20191210
  3. VENETOCLAX. [Suspect]
     Active Substance: VENETOCLAX
     Indication: CHRONIC LYMPHOCYTIC LEUKAEMIA
     Dosage: 20 MG PO QD DAYS 1-7 CYCLE 3, 50 MG PO QD DAYS 8-14, CYCLE 3, 100 MG PO QD DAYS 15-21, CYCLE 3, 200
     Route: 048
     Dates: start: 20200211
  4. METOPROLOL. [Concomitant]
     Active Substance: METOPROLOL
  5. MIDODRINE [Concomitant]
     Active Substance: MIDODRINE
  6. CARVEDILOL. [Concomitant]
     Active Substance: CARVEDILOL

REACTIONS (5)
  - Myocardial infarction [Not Recovered/Not Resolved]
  - Pneumonia [Recovered/Resolved]
  - Dyspnoea [Recovered/Resolved]
  - Pneumonia [Not Recovered/Not Resolved]
  - Syncope [Recovered/Resolved with Sequelae]

NARRATIVE: CASE EVENT DATE: 20200330
